FAERS Safety Report 8220475-X (Version None)
Quarter: 2012Q1

REPORT INFORMATION
  Report Type: 
  Country: None (occurrence: None)
  Receive Date: 20120320
  Receipt Date: 20120312
  Transmission Date: 20120608
  Serious: Yes (Other)
  Sender: FDA-Public Use
  Company Number: JP-JNJFOC-20120307649

PATIENT

DRUGS (3)
  1. TRAMADOL HYDROCHLORIDE AND ACETAMINOPHEN [Suspect]
     Indication: PAIN
     Dosage: 3 DOSES PER DAY
     Route: 048
     Dates: start: 20120217
  2. KENALOG [Concomitant]
     Route: 065
  3. TPN [Concomitant]
     Route: 048

REACTIONS (3)
  - INCORRECT DOSE ADMINISTERED [None]
  - STOMATITIS [None]
  - SOMNOLENCE [None]
